FAERS Safety Report 21682035 (Version 1)
Quarter: 2022Q4

REPORT INFORMATION
  Report Type: Spontaneous
  Country: US (occurrence: None)
  Receive Date: 20221204
  Receipt Date: 20221204
  Transmission Date: 20230113
  Serious: Yes (Life-Threatening, Hospitalization)
  Sender: FDA-Public Use
  Company Number: None

PATIENT
  Age: 74 Year
  Sex: Female
  Weight: 71.1 kg

DRUGS (1)
  1. GAMUNEX-C [Suspect]
     Active Substance: HUMAN IMMUNOGLOBULIN G
     Indication: Parainfluenzae virus infection
     Route: 042
     Dates: start: 20221128, end: 20221128

REACTIONS (14)
  - Chills [None]
  - Infusion related reaction [None]
  - Blood pressure increased [None]
  - Respiratory distress [None]
  - Pulmonary congestion [None]
  - Blood creatinine increased [None]
  - Diarrhoea [None]
  - Troponin increased [None]
  - Hypervolaemia [None]
  - Fatigue [None]
  - Decreased appetite [None]
  - Dyspnoea exertional [None]
  - Cough [None]
  - Fatigue [None]

NARRATIVE: CASE EVENT DATE: 20221128
